FAERS Safety Report 8974589 (Version 1)
Quarter: 2012Q4

REPORT INFORMATION
  Report Type: 
  Country: US (occurrence: US)
  Receive Date: 20121219
  Receipt Date: 20121219
  Transmission Date: 20130627
  Serious: No
  Sender: FDA-Public Use
  Company Number: US-AMGEN-USASP2012057478

PATIENT
  Sex: Female

DRUGS (3)
  1. PROLIA [Suspect]
     Indication: OSTEOPENIA
     Dosage: 60 mg, q6mo
     Dates: start: 20110615
  2. PROLIA [Suspect]
     Dosage: 60 mg, q6mo
     Dates: start: 20120103
  3. PROLIA [Suspect]
     Dosage: 60 mg, q6mo
     Dates: start: 201207

REACTIONS (2)
  - White blood cell count decreased [Not Recovered/Not Resolved]
  - Urticaria [Unknown]
